FAERS Safety Report 6587386-7 (Version None)
Quarter: 2010Q1

REPORT INFORMATION
  Report Type: 
  Country: None (occurrence: None)
  Receive Date: 20100217
  Receipt Date: 20090519
  Transmission Date: 20100710
  Serious: No
  Sender: FDA-Public Use
  Company Number: US-ALLERGAN-0907037US

PATIENT
  Sex: Male

DRUGS (1)
  1. BOTOX COSMETIC [Suspect]
     Indication: SKIN WRINKLING
     Dosage: UNK, SINGLE
     Route: 030
     Dates: start: 20090516, end: 20090516

REACTIONS (4)
  - HEART RATE INCREASED [None]
  - HYPERHIDROSIS [None]
  - RESPIRATORY RATE INCREASED [None]
  - TREMOR [None]
